FAERS Safety Report 8273731-3 (Version None)
Quarter: 2012Q2

REPORT INFORMATION
  Report Type: 
  Country: None (occurrence: None)
  Receive Date: 20120409
  Receipt Date: 20120409
  Transmission Date: 20120825
  Serious: Yes (Hospitalization)
  Sender: FDA-Public Use
  Company Number: None

PATIENT
  Sex: Female
  Weight: 55 kg

DRUGS (2)
  1. ELOXATIN [Suspect]
     Dosage: 282 MG
  2. BEVACIZUMAB (RHUMAB VEGF) [Suspect]
     Dosage: 282 MG

REACTIONS (1)
  - ILEUS [None]
